FAERS Safety Report 9124149 (Version 1)
Quarter: 2013Q1

REPORT INFORMATION
  Report Type: Spontaneous
  Country: US (occurrence: US)
  Receive Date: 20130227
  Receipt Date: 20130227
  Transmission Date: 20140127
  Serious: No
  Sender: FDA-Public Use
  Company Number: US-PFIZER INC-2013066750

PATIENT
  Age: 62 Year
  Sex: Female

DRUGS (4)
  1. GEODON [Suspect]
     Dosage: UNK
     Dates: start: 2012
  2. LEVEMIR [Concomitant]
     Indication: DIABETES MELLITUS
     Dosage: 80 UNITS DURING DAY, 20 UNITS AT NIGHT
  3. NOVOLOG [Concomitant]
     Indication: DIABETES MELLITUS
     Dosage: 8 UNITS, 3X/DAY
     Dates: start: 2012
  4. GLUCOPHAGE [Concomitant]
     Indication: DIABETES MELLITUS
     Dosage: UNK

REACTIONS (1)
  - Blood glucose increased [Unknown]
